FAERS Safety Report 11136616 (Version 1)
Quarter: 2015Q2

REPORT INFORMATION
  Report Type: Spontaneous
  Country: US (occurrence: US)
  Receive Date: 20150526
  Receipt Date: 20150526
  Transmission Date: 20150821
  Serious: No
  Sender: FDA-Public Use
  Company Number: US-BAYER-2015-229453

PATIENT
  Age: 32 Year
  Sex: Female

DRUGS (1)
  1. MIRENA [Suspect]
     Active Substance: LEVONORGESTREL
     Indication: MENSTRUAL CYCLE MANAGEMENT
     Dosage: 20 MCG/24HR, CONT
     Route: 015
     Dates: start: 20150507

REACTIONS (4)
  - Off label use [None]
  - Dermatitis acneiform [Not Recovered/Not Resolved]
  - Rash macular [Not Recovered/Not Resolved]
  - Skin exfoliation [Not Recovered/Not Resolved]

NARRATIVE: CASE EVENT DATE: 20150507
